FAERS Safety Report 4436938-9 (Version None)
Quarter: 2004Q3

REPORT INFORMATION
  Report Type: 
  Country: None (occurrence: None)
  Receive Date: 20040827
  Receipt Date: 20040817
  Transmission Date: 20050211
  Serious: Yes (Hospitalization, Other)
  Sender: FDA-Public Use
  Company Number: STA-AE-04-MTX-357

PATIENT
  Age: 46 Year
  Sex: Female

DRUGS (6)
  1. METHOTREXATE [Suspect]
     Indication: DERMATOMYOSITIS
     Dosage: SEE IMAGE
     Route: 048
     Dates: start: 19990701, end: 20000801
  2. METHOTREXATE [Suspect]
     Indication: DERMATOMYOSITIS
     Dosage: SEE IMAGE
     Route: 048
     Dates: start: 19990801, end: 20000801
  3. MYCOPHENOLATE MOFETIL(MYCOPHENOLATE MOFETIL) [Concomitant]
     Dosage: 1 G 2X PER 1 DAY, ORAL
     Route: 048
     Dates: start: 19990701, end: 19990801
  4. PREDNISONE TAB [Concomitant]
  5. HYDROCORTISONE [Concomitant]
  6. SUNSCREEN (BUTYL METHOXYDIBENZOYLMETHANE/ETHYLHEXYL P- METHOXYCINNATAM [Concomitant]

REACTIONS (4)
  - CENTRAL NERVOUS SYSTEM LYMPHOMA [None]
  - EPSTEIN-BARR VIRUS INFECTION [None]
  - PARESIS [None]
  - VIITH NERVE PARALYSIS [None]
